FAERS Safety Report 17892170 (Version 1)
Quarter: 2020Q2

REPORT INFORMATION
  Report Type: Spontaneous
  Country: SE (occurrence: SE)
  Receive Date: 20200612
  Receipt Date: 20200612
  Transmission Date: 20200714
  Serious: Yes (Other)
  Sender: FDA-Public Use
  Company Number: SE-ELI_LILLY_AND_COMPANY-SE202006003151

PATIENT
  Age: 56 Year
  Sex: Female

DRUGS (8)
  1. ATARAX [ALPRAZOLAM] [Concomitant]
     Active Substance: ALPRAZOLAM
  2. ESTRADOT [Concomitant]
     Active Substance: ESTRADIOL
     Dosage: 37,5 MICROGRAM/24 H
  3. PROPAVAN [Concomitant]
     Active Substance: PROPIOMAZINE
     Dosage: 1-2 VB
  4. OLANZAPINE. [Concomitant]
     Active Substance: OLANZAPINE
     Dates: start: 202003
  5. PREGABALIN. [Suspect]
     Active Substance: PREGABALIN
     Indication: DEPRESSION
     Dosage: UNK UNK, UNKNOWN
     Route: 065
     Dates: start: 202003
  6. ALVEDON [Concomitant]
     Active Substance: ACETAMINOPHEN
     Dosage: VB
  7. DULOXETINE HYDROCHLORIDE. [Suspect]
     Active Substance: DULOXETINE HYDROCHLORIDE
     Indication: DEPRESSION
     Dosage: UNK UNK, UNKNOWN
     Route: 065
     Dates: start: 202003
  8. MELATONIN AGB [Concomitant]
     Dosage: 1-2 TILL NATTEN

REACTIONS (1)
  - Oedema peripheral [Not Recovered/Not Resolved]

NARRATIVE: CASE EVENT DATE: 202003
